FAERS Safety Report 21995579 (Version 1)
Quarter: 2023Q1

REPORT INFORMATION
  Report Type: Spontaneous
  Country: US (occurrence: None)
  Receive Date: 20230214
  Receipt Date: 20230214
  Transmission Date: 20230418
  Serious: Yes (Disabling, Other)
  Sender: FDA-Public Use
  Company Number: None

PATIENT
  Age: 44 Year
  Sex: Female
  Weight: 54 kg

DRUGS (1)
  1. QUETIAPINE [Suspect]
     Active Substance: QUETIAPINE
     Dosage: FREQUENCY : AT BEDTIME;?
     Route: 048

REACTIONS (5)
  - Muscle spasms [None]
  - Seizure [None]
  - Muscle twitching [None]
  - Skin burning sensation [None]
  - Electric shock sensation [None]

NARRATIVE: CASE EVENT DATE: 20230212
